FAERS Safety Report 15487017 (Version 1)
Quarter: 2018Q4

REPORT INFORMATION
  Report Type: Spontaneous
  Country: US (occurrence: US)
  Receive Date: 20181003
  Receipt Date: 20181003
  Transmission Date: 20190205
  Serious: No
  Sender: FDA-Public Use
  Company Number: None

PATIENT
  Age: 37 Year
  Sex: Female
  Weight: 75.52 kg

DRUGS (1)
  1. LITHIUM. [Suspect]
     Active Substance: LITHIUM
     Indication: SCHIZOAFFECTIVE DISORDER
     Route: 048
     Dates: start: 20180518, end: 20180723

REACTIONS (5)
  - Urticaria [None]
  - Rash pruritic [None]
  - Pruritus [None]
  - Rash erythematous [None]
  - Petechiae [None]

NARRATIVE: CASE EVENT DATE: 20180716
